FAERS Safety Report 7012956-1 (Version None)
Quarter: 2010Q3

REPORT INFORMATION
  Report Type: 
  Country: None (occurrence: None)
  Receive Date: 20100922
  Receipt Date: 20100909
  Transmission Date: 20110219
  Serious: Yes (Hospitalization)
  Sender: FDA-Public Use
  Company Number: 2010SP048391

PATIENT
  Age: 92 Year
  Sex: Female

DRUGS (2)
  1. CLARITIN [Suspect]
     Indication: PRURITUS
     Dosage: 10 MG;QD;PO
     Route: 048
     Dates: start: 20100701, end: 20100818
  2. LASIX [Concomitant]

REACTIONS (2)
  - DIARRHOEA [None]
  - OCCULT BLOOD POSITIVE [None]
